FAERS Safety Report 20332967 (Version 1)
Quarter: 2022Q1

REPORT INFORMATION
  Report Type: Spontaneous
  Country: US (occurrence: US)
  Receive Date: 20220113
  Receipt Date: 20220113
  Transmission Date: 20220423
  Serious: No
  Sender: FDA-Public Use
  Company Number: US-PFIZER INC-2020463782

PATIENT
  Age: 62 Year
  Sex: Female
  Weight: 108.86 kg

DRUGS (3)
  1. PRISTIQ EXTENDED-RELEASE [Suspect]
     Active Substance: DESVENLAFAXINE SUCCINATE
     Indication: Post-traumatic stress disorder
     Dosage: 50 MG, DAILY
     Dates: end: 2018
  2. PRISTIQ EXTENDED-RELEASE [Suspect]
     Active Substance: DESVENLAFAXINE SUCCINATE
     Indication: Depression
  3. ATENOLOL [Concomitant]
     Active Substance: ATENOLOL
     Indication: Heart rate abnormal
     Dosage: 12.5 MG, DAILY

REACTIONS (1)
  - Abdominal pain upper [Unknown]
